FAERS Safety Report 17954835 (Version 1)
Quarter: 2020Q2

REPORT INFORMATION
  Report Type: Spontaneous
  Country: NL (occurrence: NL)
  Receive Date: 20200629
  Receipt Date: 20200629
  Transmission Date: 20200714
  Serious: Yes (Other)
  Sender: FDA-Public Use
  Company Number: NL-SUN PHARMACEUTICAL INDUSTRIES LTD-2020RR-251671

PATIENT
  Age: 79 Year
  Sex: Male
  Weight: 100 kg

DRUGS (6)
  1. ESOMEPRAZOL [Suspect]
     Active Substance: ESOMEPRAZOLE
     Indication: PROPHYLAXIS AGAINST GASTROINTESTINAL ULCER
     Dosage: 40 MILLIGRAM, DAILY (1D1T)
     Route: 065
     Dates: start: 2017
  2. FUROSEMIDEFUROSEMIDE TABLET 20MG [Concomitant]
     Indication: PRODUCT USED FOR UNKNOWN INDICATION
     Dosage: TABLET, 20 MG (MILLIGRAM) ()
     Route: 065
  3. LEVOTHYROXINELEVOTHYROXINE TABLET 100UG (ZUUR) [Concomitant]
     Indication: PRODUCT USED FOR UNKNOWN INDICATION
     Dosage: TABLET, 100 MICROGRAM
     Route: 065
  4. COZAAR (LOSARTAN)COZAAR TABLET FILMOMHULD  50MGLOSARTAN TABLET FO  ... [Concomitant]
     Indication: PRODUCT USED FOR UNKNOWN INDICATION
     Dosage: FILMOMHULDE TABLET, 50 MG (MILLIGRAM) ()
     Route: 065
  5. BOOTS PHARMACEUTICALS (FOLIUMZUUR)FOLIUMZUUR TABLET 5MG [Concomitant]
     Indication: PRODUCT USED FOR UNKNOWN INDICATION
     Dosage: 5 MG ()
     Route: 065
  6. ACETYLSALICYLZUURACETYLSALICYLZUUR TABLET 100MG [Concomitant]
     Indication: PRODUCT USED FOR UNKNOWN INDICATION
     Dosage: TABLET, 100 MG (MILLIGRAM) ()
     Route: 065

REACTIONS (1)
  - Campylobacter gastroenteritis [Not Recovered/Not Resolved]

NARRATIVE: CASE EVENT DATE: 20200519
